FAERS Safety Report 17257385 (Version 7)
Quarter: 2021Q1

REPORT INFORMATION
  Report Type: Spontaneous
  Country: US (occurrence: US)
  Receive Date: 20200110
  Receipt Date: 20210219
  Transmission Date: 20210419
  Serious: No
  Sender: FDA-Public Use
  Company Number: US-PFIZER INC-2020011317

PATIENT
  Age: 69 Year
  Sex: Female
  Weight: 71.2 kg

DRUGS (1)
  1. ESTRING [Suspect]
     Active Substance: ESTRADIOL
     Indication: ATROPHIC VULVOVAGINITIS
     Dosage: 2 MG, UNK (INSERT 1 RING VAGINALLY EVERY 90 DAYS)
     Route: 067

REACTIONS (5)
  - Tinnitus [Unknown]
  - Eustachian tube disorder [Unknown]
  - Viral infection [Not Recovered/Not Resolved]
  - Nasopharyngitis [Recovered/Resolved]
  - Hypoacusis [Unknown]
